FAERS Safety Report 4371914-6 (Version None)
Quarter: 2004Q2

REPORT INFORMATION
  Report Type: 
  Country: None (occurrence: None)
  Receive Date: 20040603
  Receipt Date: 20040603
  Transmission Date: 20050107
  Serious: No
  Sender: FDA-Public Use
  Company Number: None

PATIENT
  Age: 46 Year
  Sex: Male
  Weight: 101.5 kg

DRUGS (2)
  1. INFED [Suspect]
     Indication: ANAEMIA
     Dosage: 25 MG IV TEST DOSE
     Route: 042
     Dates: start: 20040324
  2. INFED [Suspect]
     Indication: RENAL FAILURE CHRONIC
     Dosage: 25 MG IV TEST DOSE
     Route: 042
     Dates: start: 20040324

REACTIONS (3)
  - COUGH [None]
  - RHINORRHOEA [None]
  - THROAT IRRITATION [None]
